FAERS Safety Report 20738229 (Version 1)
Quarter: 2022Q2

REPORT INFORMATION
  Report Type: Report from Study
  Country: US (occurrence: US)
  Receive Date: 20220422
  Receipt Date: 20220422
  Transmission Date: 20220721
  Serious: Yes (Life-Threatening, Hospitalization, Other)
  Sender: FDA-Public Use
  Company Number: US-BRISTOL-MYERS SQUIBB COMPANY-2022-019455

PATIENT
  Age: 16 Month
  Sex: Female

DRUGS (2)
  1. IPILIMUMAB [Suspect]
     Active Substance: IPILIMUMAB
     Indication: Rhabdoid tumour of the kidney
     Route: 065
     Dates: start: 20220317
  2. NIVOLUMAB [Suspect]
     Active Substance: NIVOLUMAB
     Indication: Rhabdoid tumour of the kidney
     Route: 065
     Dates: start: 20220317

REACTIONS (2)
  - Pleural effusion [Unknown]
  - Pneumonitis [Unknown]
